FAERS Safety Report 7242319-5 (Version None)
Quarter: 2011Q1

REPORT INFORMATION
  Report Type: 
  Country: None (occurrence: None)
  Receive Date: 20110125
  Receipt Date: 20110114
  Transmission Date: 20110831
  Serious: No
  Sender: FDA-Public Use
  Company Number: US-BIOGENIDEC-2010BI043151

PATIENT
  Age: 33 Year
  Sex: Female

DRUGS (2)
  1. TYSABRI [Suspect]
     Route: 042
     Dates: start: 20080620, end: 20080620
  2. TYSABRI [Suspect]
     Indication: MULTIPLE SCLEROSIS
     Route: 042
     Dates: start: 20101203, end: 20101203

REACTIONS (5)
  - CHEST PAIN [None]
  - BLOOD PRESSURE FLUCTUATION [None]
  - DYSPNOEA [None]
  - HEART RATE ABNORMAL [None]
  - HYPERSENSITIVITY [None]
